FAERS Safety Report 9115557 (Version 1)
Quarter: 2013Q1

REPORT INFORMATION
  Report Type: Spontaneous
  Country: US (occurrence: US)
  Receive Date: 20130225
  Receipt Date: 20130225
  Transmission Date: 20140127
  Serious: Yes (Other)
  Sender: FDA-Public Use
  Company Number: US-PFIZER INC-2013067557

PATIENT
  Sex: Male
  Weight: 65.76 kg

DRUGS (3)
  1. GABAPENTIN [Suspect]
     Indication: NEURALGIA
     Dosage: 3000 MG, DAILY
     Dates: start: 2009
  2. GABAPENTIN [Suspect]
     Indication: BIPOLAR DISORDER
     Dosage: 900 MG, 3X/DAY
  3. GABAPENTIN [Suspect]
     Indication: ANXIETY

REACTIONS (6)
  - Drug withdrawal syndrome [Not Recovered/Not Resolved]
  - Depression suicidal [Not Recovered/Not Resolved]
  - Drug tolerance [Unknown]
  - Anxiety [Not Recovered/Not Resolved]
  - Insomnia [Not Recovered/Not Resolved]
  - Feeling abnormal [Not Recovered/Not Resolved]
